FAERS Safety Report 14680374 (Version 1)
Quarter: 2018Q1

REPORT INFORMATION
  Report Type: Spontaneous
  Country: US (occurrence: US)
  Receive Date: 20180326
  Receipt Date: 20180326
  Transmission Date: 20180509
  Serious: Yes (Hospitalization, Other)
  Sender: FDA-Public Use
  Company Number: US-CELGENEUS-USA-20180306030

PATIENT
  Sex: Female

DRUGS (2)
  1. OTEZLA [Suspect]
     Active Substance: APREMILAST
     Indication: PSORIATIC ARTHROPATHY
     Dosage: 60 MILLIGRAM
     Route: 065
  2. OTEZLA [Suspect]
     Active Substance: APREMILAST
     Indication: PSORIASIS

REACTIONS (7)
  - Osteoarthritis [Unknown]
  - Arthropathy [Unknown]
  - Sleep apnoea syndrome [Unknown]
  - Gait disturbance [Unknown]
  - Staphylococcal infection [Unknown]
  - Intervertebral disc protrusion [Unknown]
  - Atrial fibrillation [Unknown]
